FAERS Safety Report 4601679-1 (Version None)
Quarter: 2005Q1

REPORT INFORMATION
  Report Type: 
  Country: None (occurrence: None)
  Receive Date: 20050308
  Receipt Date: 20050303
  Transmission Date: 20050727
  Serious: Yes (Other)
  Sender: FDA-Public Use
  Company Number: PHRM2005FR00954

PATIENT
  Age: 36 Year
  Sex: Female
  Weight: 43 kg

DRUGS (1)
  1. GYNERGENE-CAFEINE [Suspect]
     Indication: HEADACHE
     Dosage: 1 DF, ONCE/SINGLE
     Route: 048

REACTIONS (1)
  - FACIAL PALSY [None]
